FAERS Safety Report 4853538-7 (Version None)
Quarter: 2005Q4

REPORT INFORMATION
  Report Type: 
  Country: None (occurrence: None)
  Receive Date: 20051214
  Receipt Date: 20050707
  Transmission Date: 20060501
  Serious: Yes (Hospitalization)
  Sender: FDA-Public Use
  Company Number: IL-JNJFOC-20051201514

PATIENT
  Weight: 3.34 kg

DRUGS (1)
  1. TOPAMAX [Suspect]
     Indication: EPILEPSY

REACTIONS (2)
  - DRUG WITHDRAWAL SYNDROME [None]
  - TREMOR [None]
